FAERS Safety Report 6754353-X (Version None)
Quarter: 2010Q2

REPORT INFORMATION
  Report Type: 
  Country: None (occurrence: None)
  Receive Date: 20100603
  Receipt Date: 20100527
  Transmission Date: 20101027
  Serious: Yes (Other)
  Sender: FDA-Public Use
  Company Number: JP-BRISTOL-MYERS SQUIBB COMPANY-15125206

PATIENT
  Age: 70 Year
  Sex: Male

DRUGS (2)
  1. PARAPLATIN [Suspect]
     Indication: LUNG ADENOCARCINOMA
     Dosage: 4 COURSES
     Route: 041
     Dates: start: 20080801, end: 20081001
  2. PACLITAXEL [Suspect]
     Indication: LUNG ADENOCARCINOMA
     Route: 041
     Dates: start: 20080801, end: 20081001

REACTIONS (1)
  - MYELODYSPLASTIC SYNDROME [None]
